FAERS Safety Report 19070383 (Version 1)
Quarter: 2021Q1

REPORT INFORMATION
  Report Type: Report from Study
  Country: US (occurrence: US)
  Receive Date: 20210329
  Receipt Date: 20210329
  Transmission Date: 20210420
  Serious: No
  Sender: FDA-Public Use
  Company Number: US-INCYTE CORPORATION-2021IN001503

PATIENT

DRUGS (1)
  1. JAKAFI [Suspect]
     Active Substance: RUXOLITINIB
     Indication: POLYCYTHAEMIA VERA
     Dosage: 20 MILLIGRAM
     Route: 048
     Dates: start: 2020

REACTIONS (7)
  - Disturbance in attention [Unknown]
  - Asthenia [Unknown]
  - Pain [Unknown]
  - Feeling abnormal [Unknown]
  - Aquagenic pruritus [Unknown]
  - Discomfort [Unknown]
  - Fatigue [Unknown]
